FAERS Safety Report 9175142 (Version 1)
Quarter: 2013Q1

REPORT INFORMATION
  Report Type: Report from Study
  Country: CA (occurrence: CA)
  Receive Date: 20130320
  Receipt Date: 20130320
  Transmission Date: 20140127
  Serious: Yes (Other)
  Sender: FDA-Public Use
  Company Number: CA-ROCHE-1079317

PATIENT
  Age: 44 Year
  Sex: Male

DRUGS (9)
  1. ZELBORAF [Suspect]
     Indication: METASTATIC MALIGNANT MELANOMA
     Route: 048
     Dates: start: 20120519
  2. MIRTAZAPINE [Suspect]
     Indication: DEPRESSION
     Route: 065
  3. ZOPICLONE [Suspect]
     Indication: DEPRESSION
     Route: 065
  4. TYLENOL #3 (CANADA) [Concomitant]
  5. HYDROMORPHONE [Concomitant]
     Indication: PAIN
  6. CODEINE SYRUP [Concomitant]
     Indication: COUGH
     Route: 065
  7. VANCOMYCIN [Concomitant]
     Indication: INFECTION
     Route: 065
     Dates: end: 201205
  8. MAXERAN [Concomitant]
     Indication: NAUSEA
     Dosage: 30 MIN BEFORE MEAL
     Route: 048
     Dates: start: 20120518
  9. PANTOPRAZOLE [Concomitant]
     Route: 065
     Dates: start: 20120518

REACTIONS (12)
  - Pyrexia [Not Recovered/Not Resolved]
  - Erythema [Recovering/Resolving]
  - Pruritus [Recovering/Resolving]
  - Rash [Recovering/Resolving]
  - Paraesthesia oral [Recovering/Resolving]
  - Dysphonia [Unknown]
  - Depression [Not Recovered/Not Resolved]
  - Decreased appetite [Recovering/Resolving]
  - Somnolence [Not Recovered/Not Resolved]
  - Fatigue [Not Recovered/Not Resolved]
  - Anxiety [Unknown]
  - Disease progression [Unknown]
